FAERS Safety Report 6529238-4 (Version None)
Quarter: 2010Q1

REPORT INFORMATION
  Report Type: 
  Country: None (occurrence: None)
  Receive Date: 20100107
  Receipt Date: 20091228
  Transmission Date: 20100710
  Serious: Yes (Other)
  Sender: FDA-Public Use
  Company Number: US-ROCHE-677078

PATIENT
  Age: 47 Year
  Sex: Male

DRUGS (2)
  1. XELODA [Suspect]
     Dosage: FRQUENCY: ONCE (DATE OF USE: 2 WEEKS AGO, ONE COURSE)
     Route: 048
     Dates: start: 20091214
  2. CISPLATIN [Suspect]
     Dosage: FREQUENCY: ONCE; DATE OF USE: 2 WEEKS AGO (1 COURSE)
     Route: 065
     Dates: start: 20091214

REACTIONS (1)
  - GLOMERULONEPHRITIS [None]
